FAERS Safety Report 16977315 (Version 2)
Quarter: 2019Q4

REPORT INFORMATION
  Report Type: Report from Study
  Country: GB (occurrence: GB)
  Receive Date: 20191031
  Receipt Date: 20191112
  Transmission Date: 20200122
  Serious: Yes (Hospitalization, Other)
  Sender: FDA-Public Use
  Company Number: PHHO2015GB019017

PATIENT
  Age: 80 Year
  Sex: Male
  Weight: 73.8 kg

DRUGS (30)
  1. PARACETAMOL [Concomitant]
     Active Substance: ACETAMINOPHEN
     Dosage: 1000 MG, UNK
     Route: 048
     Dates: start: 20160121, end: 20160121
  2. CHLORPHENIRAMINE. [Concomitant]
     Active Substance: CHLORPHENIRAMINE
     Indication: CHRONIC LYMPHOCYTIC LEUKAEMIA
     Dosage: 20 MG, (DAY 1 + 8)
     Route: 042
     Dates: start: 20151022
  3. BISOPROLOL [Concomitant]
     Active Substance: BISOPROLOL
     Indication: PRODUCT USED FOR UNKNOWN INDICATION
     Dosage: UNK
     Route: 048
     Dates: start: 20190828
  4. BENDAMUSTINE [Suspect]
     Active Substance: BENDAMUSTINE
     Dosage: 137.5 MG, UNK
     Route: 042
     Dates: start: 20160121, end: 20160121
  5. METOCLOPRAMIDE. [Concomitant]
     Active Substance: METOCLOPRAMIDE
     Indication: CHRONIC LYMPHOCYTIC LEUKAEMIA
     Dosage: 10 MG, UNK
     Route: 048
     Dates: start: 20151022
  6. G-CSF [Concomitant]
     Active Substance: GRANULOCYTE COLONY-STIMULATING FACTOR NOS
     Indication: PRODUCT USED FOR UNKNOWN INDICATION
     Route: 065
  7. IBROFEN [Concomitant]
     Indication: PRODUCT USED FOR UNKNOWN INDICATION
     Dosage: 5 MG
     Route: 058
     Dates: start: 20180212
  8. OFATUMUMAB [Suspect]
     Active Substance: OFATUMUMAB
     Indication: CHRONIC LYMPHOCYTIC LEUKAEMIA
     Dosage: 1300 MG, UNK
     Route: 042
     Dates: start: 20151022
  9. OFATUMUMAB [Suspect]
     Active Substance: OFATUMUMAB
     Dosage: 1000 MG, UNK
     Route: 042
     Dates: start: 20160121, end: 20160121
  10. BENDAMUSTINE [Suspect]
     Active Substance: BENDAMUSTINE
     Indication: CHRONIC LYMPHOCYTIC LEUKAEMIA
     Dosage: 275 MG, (70 MG/M2)
     Route: 042
     Dates: start: 20151022
  11. EFUDIX [Concomitant]
     Active Substance: FLUOROURACIL
     Indication: PRODUCT USED FOR UNKNOWN INDICATION
     Dosage: 600 MG
     Route: 048
     Dates: start: 20190819
  12. BETNOVATE [Concomitant]
     Active Substance: BETAMETHASONE
     Indication: RASH
     Dosage: OINTMENT, BID
     Route: 061
     Dates: start: 20160118
  13. PARACETAMOL [Concomitant]
     Active Substance: ACETAMINOPHEN
     Dosage: 500 UNK
     Route: 048
     Dates: start: 20190722
  14. CHLORPHENIRAMINE. [Concomitant]
     Active Substance: CHLORPHENIRAMINE
     Dosage: 10 MG, UNK
     Route: 042
     Dates: start: 20160121, end: 20160121
  15. HYDROCORTISONE. [Concomitant]
     Active Substance: HYDROCORTISONE
     Dosage: 100 MG, UNK
     Route: 042
     Dates: start: 20160121, end: 20160121
  16. ALLOPURINOL. [Concomitant]
     Active Substance: ALLOPURINOL
     Indication: CHRONIC LYMPHOCYTIC LEUKAEMIA
     Dosage: 300 MG, UNK
     Route: 042
     Dates: start: 20151022, end: 20160121
  17. DERMOL [Concomitant]
     Active Substance: BENZALKONIUM CHLORIDE\CHLORHEXIDINE HYDROCHLORIDE\ISOPROPYL MYRISTATE\PARAFFIN
     Indication: RASH
     Dosage: 1.0 APPLICATION, PRN
     Route: 061
     Dates: start: 20160118
  18. GANFORT [Concomitant]
     Active Substance: BIMATOPROST\TIMOLOL
     Dosage: 50 MG, QD
     Route: 061
     Dates: start: 20110502
  19. EUMOVATE [Concomitant]
     Active Substance: CLOBETASONE BUTYRATE
     Indication: RASH
     Dosage: OINTMENT, 100 G (0.1%) BID
     Route: 061
     Dates: start: 20160118
  20. EPADERM [Concomitant]
     Active Substance: MINERAL OIL\PETROLATUM\WAX, EMULSIFYING
     Indication: RASH
     Dosage: 125 G, PM
     Route: 061
     Dates: start: 20160118
  21. IDELALISIB [Suspect]
     Active Substance: IDELALISIB
     Indication: CHRONIC LYMPHOCYTIC LEUKAEMIA
     Dosage: UNK
     Route: 048
     Dates: start: 20151022, end: 20160121
  22. GANFORT [Concomitant]
     Active Substance: BIMATOPROST\TIMOLOL
     Indication: GLAUCOMA
     Dosage: 1 DF (50 MG/ML + 300 MCG/ML), QD
     Route: 061
     Dates: start: 20110302
  23. NAPROXEN. [Concomitant]
     Active Substance: NAPROXEN
     Indication: PROCEDURAL PAIN
     Dosage: 500 MG, BID
     Route: 048
     Dates: start: 20151014, end: 20151021
  24. GABAPENTIN. [Concomitant]
     Active Substance: GABAPENTIN
     Indication: PROCEDURAL PAIN
     Dosage: 600 MG, QD
     Route: 048
     Dates: start: 20151021, end: 20151110
  25. HYDROCORTISONE. [Concomitant]
     Active Substance: HYDROCORTISONE
     Indication: CHRONIC LYMPHOCYTIC LEUKAEMIA
     Dosage: 200 MG, (DAY 1 + 8)
     Route: 042
     Dates: start: 20151022
  26. PARACETAMOL [Concomitant]
     Active Substance: ACETAMINOPHEN
     Indication: CHRONIC LYMPHOCYTIC LEUKAEMIA
     Dosage: 2000 MG (DAY 1 + 3)
     Route: 042
     Dates: start: 20151022
  27. METOCLOPRAMIDE. [Concomitant]
     Active Substance: METOCLOPRAMIDE
     Dosage: 8 MG, UNK
     Route: 042
     Dates: start: 20160121, end: 20160121
  28. ACICLOVIR [Concomitant]
     Active Substance: ACYCLOVIR
     Indication: CHRONIC LYMPHOCYTIC LEUKAEMIA
     Dosage: 400 MG, UNK
     Route: 048
     Dates: start: 20151022, end: 20160121
  29. COTRIMOXAZOLE [Concomitant]
     Active Substance: SULFAMETHOXAZOLE\TRIMETHOPRIM
     Indication: CHRONIC LYMPHOCYTIC LEUKAEMIA
     Dosage: 960 MG, UNK
     Route: 048
     Dates: start: 20151022, end: 20160121
  30. GENTAMYCINE [Concomitant]
     Active Substance: GENTAMICIN
     Indication: INFECTION
     Dosage: 320 MG, UNK
     Route: 042
     Dates: start: 20160121, end: 20160122

REACTIONS (5)
  - Second primary malignancy [Recovered/Resolved]
  - Basal cell carcinoma [Recovered/Resolved]
  - Pyrexia [Recovered/Resolved]
  - Pyrexia [Recovered/Resolved]
  - Pyrexia [Recovered/Resolved]

NARRATIVE: CASE EVENT DATE: 20151031
